FAERS Safety Report 17389059 (Version 1)
Quarter: 2020Q1

REPORT INFORMATION
  Report Type: Spontaneous
  Country: FR (occurrence: FR)
  Receive Date: 20200206
  Receipt Date: 20200206
  Transmission Date: 20200409
  Serious: Yes (Hospitalization)
  Sender: FDA-Public Use
  Company Number: FR-ROCHE-2538795

PATIENT
  Age: 72 Year
  Sex: Male
  Weight: 90 kg

DRUGS (6)
  1. CARBOPLATINE [Concomitant]
     Active Substance: CARBOPLATIN
  2. ETOPOSIDE. [Concomitant]
     Active Substance: ETOPOSIDE
  3. TECENTRIQ [Suspect]
     Active Substance: ATEZOLIZUMAB
     Indication: SMALL CELL LUNG CANCER METASTATIC
     Route: 042
     Dates: start: 20190902, end: 20190924
  4. ESOMEPRAZOLE. [Concomitant]
     Active Substance: ESOMEPRAZOLE MAGNESIUM
  5. ALPRESS LP [Concomitant]
     Active Substance: PRAZOSIN HYDROCHLORIDE
  6. ISOPTINE [Concomitant]
     Active Substance: VERAPAMIL HYDROCHLORIDE

REACTIONS (2)
  - Condition aggravated [Recovering/Resolving]
  - Myasthenic syndrome [Not Recovered/Not Resolved]

NARRATIVE: CASE EVENT DATE: 20191007
